FAERS Safety Report 5199364-3 (Version None)
Quarter: 2006Q4

REPORT INFORMATION
  Report Type: 
  Country: None (occurrence: None)
  Receive Date: 20061229
  Receipt Date: 20061214
  Transmission Date: 20070319
  Serious: Yes (Other)
  Sender: FDA-Public Use
  Company Number: 2006RR-04943

PATIENT
  Age: 49 Year
  Sex: Female

DRUGS (2)
  1. ASCORBIC ACID(ASCORBIC ACID) UNKNOWN [Suspect]
     Dosage: 4 G, QD
  2. IBUPROFEN [Suspect]
     Indication: MIGRAINE
     Dosage: 2000 MG, QD

REACTIONS (11)
  - ANURIA [None]
  - BIOPSY KIDNEY ABNORMAL [None]
  - DEHYDRATION [None]
  - HAEMODIALYSIS [None]
  - MUCOUS MEMBRANE DISORDER [None]
  - NAUSEA [None]
  - ORTHOSTATIC HYPERTENSION [None]
  - OXALOSIS [None]
  - RENAL FAILURE [None]
  - RENAL TUBULAR NECROSIS [None]
  - VOMITING [None]
